FAERS Safety Report 8181388-5 (Version None)
Quarter: 2012Q1

REPORT INFORMATION
  Report Type: 
  Country: None (occurrence: None)
  Receive Date: 20120302
  Receipt Date: 20120220
  Transmission Date: 20120608
  Serious: Yes (Other)
  Sender: FDA-Public Use
  Company Number: DE-TEVA-323468GER

PATIENT

DRUGS (4)
  1. FLUOROURACIL [Suspect]
  2. DOCETAXEL [Suspect]
     Route: 042
     Dates: start: 20110621
  3. CARBOPLATIN [Suspect]
  4. DOCETAXEL [Suspect]
     Route: 042
     Dates: start: 20110523

REACTIONS (4)
  - MUCOSAL INFLAMMATION [None]
  - LEUKOPENIA [None]
  - FLUID INTAKE REDUCED [None]
  - FEBRILE NEUTROPENIA [None]
